FAERS Safety Report 12751948 (Version 2)
Quarter: 2017Q3

REPORT INFORMATION
  Report Type: Spontaneous
  Country: US (occurrence: US)
  Receive Date: 20160915
  Receipt Date: 20170914
  Transmission Date: 20171127
  Serious: No
  Sender: FDA-Public Use
  Company Number: US-ASTELLAS-2016US025485

PATIENT
  Age: 82 Year
  Sex: Male

DRUGS (1)
  1. XTANDI [Suspect]
     Active Substance: ENZALUTAMIDE
     Indication: PROSTATE CANCER
     Route: 048
     Dates: start: 20150904, end: 201610

REACTIONS (6)
  - Drug ineffective [Unknown]
  - Foreign body in respiratory tract [Not Recovered/Not Resolved]
  - Oesophageal discomfort [Unknown]
  - Oesophageal pain [Not Recovered/Not Resolved]
  - Dysphagia [Not Recovered/Not Resolved]
  - Oesophageal irritation [Not Recovered/Not Resolved]

NARRATIVE: CASE EVENT DATE: 201610
